FAERS Safety Report 23939748 (Version 3)
Quarter: 2024Q3

REPORT INFORMATION
  Report Type: Report from Study
  Country: US (occurrence: US)
  Receive Date: 20240605
  Receipt Date: 20240805
  Transmission Date: 20241017
  Serious: Yes (Other)
  Sender: ABBVIE
  Company Number: US-ABBVIE-5783849

PATIENT
  Sex: Female

DRUGS (1)
  1. RINVOQ [Suspect]
     Active Substance: UPADACITINIB
     Indication: Rheumatoid arthritis
     Route: 048
     Dates: start: 202401

REACTIONS (11)
  - Plasma cell myeloma [Recovering/Resolving]
  - Peripheral swelling [Recovering/Resolving]
  - Adverse drug reaction [Recovering/Resolving]
  - Joint stiffness [Recovering/Resolving]
  - Neuropathy peripheral [Recovering/Resolving]
  - Anaemia [Unknown]
  - Haemoglobin decreased [Unknown]
  - Red blood cell count decreased [Unknown]
  - Haematocrit decreased [Unknown]
  - Neutrophil count decreased [Unknown]
  - Blood erythropoietin increased [Unknown]

NARRATIVE: CASE EVENT DATE: 20240101
